FAERS Safety Report 11420211 (Version 1)
Quarter: 2015Q3

REPORT INFORMATION
  Report Type: Spontaneous
  Country: US (occurrence: None)
  Receive Date: 20150825
  Receipt Date: 20150825
  Transmission Date: 20151125
  Serious: Yes (Hospitalization)
  Sender: FDA-Public Use
  Company Number: None

PATIENT
  Age: 72 Year
  Sex: Male

DRUGS (1)
  1. RIVAROXABAN [Suspect]
     Active Substance: RIVAROXABAN
     Route: 048
     Dates: start: 20150812, end: 20150813

REACTIONS (4)
  - Angioedema [None]
  - Eosinophilic fasciitis [None]
  - Oedema peripheral [None]
  - Erythema [None]

NARRATIVE: CASE EVENT DATE: 20150813
